FAERS Safety Report 7239263-6 (Version None)
Quarter: 2011Q1

REPORT INFORMATION
  Report Type: 
  Country: None (occurrence: None)
  Receive Date: 20110119
  Receipt Date: 20110119
  Transmission Date: 20110831
  Serious: Yes (Life-Threatening, Hospitalization)
  Sender: FDA-Public Use
  Company Number: None

PATIENT
  Age: 56 Year
  Sex: Female
  Weight: 68.0396 kg

DRUGS (1)
  1. LAMICTAL [Suspect]
     Indication: MANIA
     Dosage: 50 MG TWICE DAILY PO
     Route: 048
     Dates: start: 20081222, end: 20090116

REACTIONS (9)
  - TEMPERATURE INTOLERANCE [None]
  - SENSORY DISTURBANCE [None]
  - HALLUCINATION [None]
  - AGITATION [None]
  - HYPERHIDROSIS [None]
  - NAUSEA [None]
  - PARANOIA [None]
  - SUICIDAL IDEATION [None]
  - MYALGIA [None]
